FAERS Safety Report 6222354-6 (Version None)
Quarter: 2009Q2

REPORT INFORMATION
  Report Type: 
  Country: None (occurrence: None)
  Receive Date: 20090609
  Receipt Date: 20090609
  Transmission Date: 20091009
  Serious: Yes (Other)
  Sender: FDA-Public Use
  Company Number: None

PATIENT
  Sex: Female
  Weight: 90.7194 kg

DRUGS (2)
  1. AZITHROMYCIN [Suspect]
     Indication: EAR INFECTION
     Dosage: 1 TABLET A DAY PO
     Route: 048
     Dates: start: 20090606, end: 20090606
  2. AZITHROMYCIN [Suspect]
     Indication: UPPER RESPIRATORY TRACT INFECTION
     Dosage: 1 TABLET A DAY PO
     Route: 048
     Dates: start: 20090606, end: 20090606

REACTIONS (8)
  - ABASIA [None]
  - CRYING [None]
  - FALL [None]
  - MOANING [None]
  - MUSCLE SPASMS [None]
  - MYALGIA [None]
  - PAIN IN EXTREMITY [None]
  - SYNCOPE [None]
